FAERS Safety Report 18413238 (Version 6)
Quarter: 2021Q4

REPORT INFORMATION
  Report Type: Spontaneous
  Country: NC (occurrence: NC)
  Receive Date: 20201021
  Receipt Date: 20211018
  Transmission Date: 20220303
  Serious: Yes (Hospitalization, Disabling, Other)
  Sender: FDA-Public Use
  Company Number: NC-GILEAD-2020-0497909

PATIENT
  Age: 55 Year
  Sex: Male
  Weight: 58 kg

DRUGS (9)
  1. BIKTARVY [Suspect]
     Active Substance: BICTEGRAVIR SODIUM\EMTRICITABINE\TENOFOVIR ALAFENAMIDE FUMARATE
     Indication: HIV infection
     Dosage: UNK
     Route: 048
     Dates: start: 201905
  2. VALPROATE SODIUM [Concomitant]
     Active Substance: VALPROATE SODIUM
     Dosage: 500 UNK
     Route: 048
     Dates: start: 2019
  3. VALPROATE SODIUM [Concomitant]
     Active Substance: VALPROATE SODIUM
     Dosage: 1000 UNK
     Route: 048
     Dates: start: 2019
  4. KARDEGIC [Concomitant]
     Active Substance: ASPIRIN DL-LYSINE
     Dosage: 100 UNK
     Route: 048
     Dates: start: 2018
  5. VESICARE [Concomitant]
     Active Substance: SOLIFENACIN SUCCINATE
     Dosage: 5 MG, QD
     Route: 048
     Dates: start: 2018
  6. TAMSULOSIN HYDROCHLORIDE [Concomitant]
     Active Substance: TAMSULOSIN HYDROCHLORIDE
     Dosage: 0.4 MG, QD
     Route: 048
     Dates: start: 2019
  7. BACLOFEN [Concomitant]
     Active Substance: BACLOFEN
     Dosage: 15 MG, QD
     Route: 048
     Dates: start: 2020
  8. PRAZEPAM [Concomitant]
     Active Substance: PRAZEPAM
     Dosage: 5 MG, BID
     Route: 048
     Dates: start: 2018
  9. VIMPAT [Concomitant]
     Active Substance: LACOSAMIDE
     Dosage: 50 MG, BID

REACTIONS (12)
  - Epilepsy [Recovering/Resolving]
  - Quadriparesis [Unknown]
  - Muscle spasms [Unknown]
  - Cognitive disorder [Not Recovered/Not Resolved]
  - Neurogenic bladder [Not Recovered/Not Resolved]
  - Renal failure [Unknown]
  - Memory impairment [Unknown]
  - Nervous system disorder [Unknown]
  - Viral load [Unknown]
  - Unevaluable event [Not Recovered/Not Resolved]
  - Dysarthria [Unknown]
  - Dysgraphia [Unknown]

NARRATIVE: CASE EVENT DATE: 20190101
